FAERS Safety Report 23117027 (Version 2)
Quarter: 2024Q2

REPORT INFORMATION
  Report Type: Spontaneous
  Country: JP (occurrence: JP)
  Receive Date: 20231027
  Receipt Date: 20240422
  Transmission Date: 20240716
  Serious: No
  Sender: FDA-Public Use
  Company Number: JP-TAIHOP-2023-009086

PATIENT

DRUGS (1)
  1. LONSURF [Suspect]
     Active Substance: TIPIRACIL HYDROCHLORIDE\TRIFLURIDINE
     Indication: Colorectal cancer
     Dosage: FORM STRENGTH, DOSE, FREQUENCY AND CYCLE WERE UNKNOWN
     Route: 048

REACTIONS (1)
  - Diarrhoea [Unknown]
